FAERS Safety Report 9520759 (Version 1)
Quarter: 2013Q1

REPORT INFORMATION
  Report Type: Spontaneous
  Country: US (occurrence: None)
  Receive Date: 20130305
  Receipt Date: 20130305
  Transmission Date: 20140127
  Serious: Yes (Hospitalization)
  Sender: FDA-Public Use
  Company Number: 163-21880-12032675

PATIENT
  Age: 47 Year
  Sex: Female

DRUGS (2)
  1. REVLIMID [Suspect]
     Indication: PLASMA CELL MYELOMA
     Dosage: 15 MG,  DAILY  X21 DAYS,  PO
     Route: 048
     Dates: start: 20101207, end: 20120316
  2. VELCADE [Concomitant]

REACTIONS (2)
  - Gastroenteritis viral [None]
  - Alopecia [None]
